FAERS Safety Report 6438066-X (Version None)
Quarter: 2009Q4

REPORT INFORMATION
  Report Type: 
  Country: None (occurrence: None)
  Receive Date: 20091112
  Receipt Date: 20091105
  Transmission Date: 20100525
  Serious: Yes (Hospitalization)
  Sender: FDA-Public Use
  Company Number: CH-BAYER-200938053GPV

PATIENT
  Age: 69 Year
  Sex: Male

DRUGS (13)
  1. CIPROXIN [Suspect]
     Indication: INFLUENZA
     Dosage: TOTAL DAILY DOSE: 1500 MG  UNIT DOSE: 750 MG
     Route: 048
     Dates: start: 20090925, end: 20090926
  2. PREDNISONE [Suspect]
     Indication: RESPIRATORY DISORDER
     Dosage: TOTAL DAILY DOSE: 40 MG  UNIT DOSE: 40 MG
     Route: 048
     Dates: start: 20090921, end: 20090926
  3. OSELTAMIVIR [Suspect]
     Indication: INFLUENZA
     Dosage: TOTAL DAILY DOSE: 150 MG  UNIT DOSE: 75 MG
     Route: 048
     Dates: start: 20090921, end: 20090926
  4. INSULATARD [Concomitant]
     Indication: TYPE 2 DIABETES MELLITUS
     Dosage: TOTAL DAILY DOSE: 80 IU  UNIT DOSE: 40 IU
     Route: 059
  5. INSULIN ASPART [Concomitant]
     Indication: TYPE 2 DIABETES MELLITUS
  6. AZITHROMYCIN [Concomitant]
     Dosage: TOTAL DAILY DOSE: 750 MG  UNIT DOSE: 250 MG
     Route: 048
  7. ACENOCOUMAROL [Concomitant]
     Indication: ATRIAL FIBRILLATION
     Route: 048
  8. SPIRONOLACTONE [Concomitant]
     Dosage: TOTAL DAILY DOSE: 50 MG  UNIT DOSE: 50 MG
     Route: 048
  9. TORASEMIDE [Concomitant]
     Dosage: TOTAL DAILY DOSE: 20 MG  UNIT DOSE: 20 MG
     Route: 048
  10. ALLOPURINOL [Concomitant]
     Dosage: TOTAL DAILY DOSE: 300 MG  UNIT DOSE: 300 MG
     Route: 048
  11. OMEPRAZOLE [Concomitant]
     Dosage: TOTAL DAILY DOSE: 40 MG  UNIT DOSE: 40 MG
     Route: 048
  12. SERETIDE (FLUTICASONE/SALMETEROL) [Concomitant]
     Route: 065
  13. TIOTROPIUM BROMIDE [Concomitant]
     Dosage: TOTAL DAILY DOSE: 18 ?G  UNIT DOSE: 18 ?G
     Route: 065

REACTIONS (4)
  - AGITATION [None]
  - CONFUSIONAL STATE [None]
  - SPEECH DISORDER [None]
  - TREMOR [None]
